FAERS Safety Report 6920968-9 (Version None)
Quarter: 2010Q3

REPORT INFORMATION
  Report Type: 
  Country: None (occurrence: None)
  Receive Date: 20100812
  Receipt Date: 20100802
  Transmission Date: 20110219
  Serious: Yes (Other)
  Sender: FDA-Public Use
  Company Number: US-PFIZER INC-2010097092

PATIENT
  Sex: Female
  Weight: 72.562 kg

DRUGS (6)
  1. TOVIAZ [Suspect]
     Indication: HYPERTONIC BLADDER
     Dosage: 4 MG, 1X/DAY
     Route: 048
     Dates: start: 20100725, end: 20100801
  2. BENADRYL [Suspect]
     Indication: PRURITUS
     Dosage: UNK
  3. BENADRYL [Suspect]
     Indication: RASH
  4. BENADRYL [Suspect]
     Indication: SWELLING
  5. PREVACID [Concomitant]
     Indication: GASTROINTESTINAL DISORDER
     Dosage: UNK
     Route: 048
  6. TRAZODONE [Concomitant]
     Indication: INSOMNIA
     Dosage: 150 MG, 1X/DAY

REACTIONS (5)
  - ARTHRALGIA [None]
  - OROPHARYNGEAL PAIN [None]
  - PRURITUS [None]
  - RASH [None]
  - SWELLING [None]
